FAERS Safety Report 4363003-1 (Version None)
Quarter: 2004Q2

REPORT INFORMATION
  Report Type: 
  Country: None (occurrence: None)
  Receive Date: 20040518
  Receipt Date: 20040505
  Transmission Date: 20050107
  Serious: Yes (Life-Threatening, Hospitalization)
  Sender: FDA-Public Use
  Company Number: 04P-066-0257375-00

PATIENT
  Age: 57 Year
  Sex: Female
  Weight: 64 kg

DRUGS (11)
  1. DEPAKINE TABLETS (SODIUM VALPROATE) (SODIUM VALPROATE) (SODIM VALPROAT [Suspect]
     Indication: EPILEPSY
     Dosage: 500 MG, 2 IN 1 D, ORAL
     Route: 048
     Dates: start: 20040205, end: 20040318
  2. TEMOZOLOMIDE [Suspect]
     Indication: GLIOBLASTOMA MULTIFORME
     Dosage: 120 MG, 1 IN 1 D, ORAL
     Route: 048
     Dates: start: 20040218, end: 20040318
  3. AMPHOTERICIN B [Suspect]
     Indication: ANTIFUNGAL PROPHYLAXIS
     Dosage: SEE IMAGE, INTRAVENOUS
     Route: 042
     Dates: start: 20040401, end: 20040402
  4. AMPHOTERICIN B [Suspect]
     Indication: ANTIFUNGAL PROPHYLAXIS
     Dosage: SEE IMAGE, INTRAVENOUS
     Route: 042
     Dates: start: 20040403, end: 20040404
  5. AMPHOTERICIN B [Suspect]
     Indication: ANTIFUNGAL PROPHYLAXIS
     Dosage: SEE IMAGE, INTRAVENOUS
     Route: 042
     Dates: start: 20040405, end: 20040406
  6. AMPHOTERICIN B [Suspect]
     Indication: ANTIFUNGAL PROPHYLAXIS
     Dosage: SEE IMAGE, INTRAVENOUS
     Route: 042
     Dates: start: 20040407, end: 20040408
  7. AMPHOTERICIN B [Suspect]
     Indication: ANTIFUNGAL PROPHYLAXIS
     Dosage: SEE IMAGE, INTRAVENOUS
     Route: 042
     Dates: start: 20040409, end: 20040410
  8. METHYLPREDNISOLONE [Suspect]
     Indication: GLIOBLASTOMA MULTIFORME
     Dosage: SEE IMAGE  PER ORAL
     Route: 048
     Dates: start: 20040218, end: 20040326
  9. METHYLPREDNISOLONE [Suspect]
     Indication: GLIOBLASTOMA MULTIFORME
     Dosage: SEE IMAGE  PER ORAL
     Route: 048
     Dates: start: 20040327
  10. LENOGRASTIM [Concomitant]
  11. EPOGEN [Concomitant]

REACTIONS (4)
  - GLIOBLASTOMA MULTIFORME [None]
  - HYPOKALAEMIA [None]
  - PANCYTOPENIA [None]
  - PYREXIA [None]
